FAERS Safety Report 6492655-5 (Version None)
Quarter: 2009Q4

REPORT INFORMATION
  Report Type: 
  Country: None (occurrence: None)
  Receive Date: 20091211
  Receipt Date: 20091211
  Transmission Date: 20100525
  Serious: Yes (Other)
  Sender: FDA-Public Use
  Company Number: None

PATIENT
  Age: 69 Year
  Sex: Male
  Weight: 75.7507 kg

DRUGS (1)
  1. ZOCOR [Suspect]
     Indication: BLOOD TRIGLYCERIDES INCREASED
     Dosage: 1 PER DAY 20 MG
     Dates: start: 20091005, end: 20091028

REACTIONS (3)
  - DYSSTASIA [None]
  - MYALGIA [None]
  - WEIGHT BEARING DIFFICULTY [None]
